FAERS Safety Report 9397640 (Version 1)
Quarter: 2013Q3

REPORT INFORMATION
  Report Type: Spontaneous
  Country: US (occurrence: US)
  Receive Date: 20130712
  Receipt Date: 20130712
  Transmission Date: 20140515
  Serious: Yes (Other)
  Sender: FDA-Public Use
  Company Number: US-SP-2013-07503

PATIENT
  Sex: Female

DRUGS (2)
  1. IMOVAX RABIES [Suspect]
     Indication: IMMUNISATION
     Dosage: NOT REPORTED
     Route: 065
     Dates: start: 1998, end: 1998
  2. IMMUNOGLOBULIN HUMAN ANTIRABIES [Suspect]
     Dosage: NOT REPORTED
     Route: 065
     Dates: start: 1998, end: 1998

REACTIONS (6)
  - Convulsion [Not Recovered/Not Resolved]
  - Migraine [Not Recovered/Not Resolved]
  - Thyroid disorder [Not Recovered/Not Resolved]
  - Hypersensitivity [Not Recovered/Not Resolved]
  - Food intolerance [Not Recovered/Not Resolved]
  - Respiratory disorder [Not Recovered/Not Resolved]
